FAERS Safety Report 9866798 (Version 2)
Quarter: 2014Q1

REPORT INFORMATION
  Report Type: Spontaneous
  Country: IT (occurrence: IT)
  Receive Date: 20140204
  Receipt Date: 20140226
  Transmission Date: 20141002
  Serious: Yes (Other)
  Sender: FDA-Public Use
  Company Number: IT-ACCORD-021624

PATIENT
  Age: 58 Year
  Sex: Female
  Weight: 66 kg

DRUGS (4)
  1. PACLITAXEL/PACLITAXEL LIPOSOME [Suspect]
     Indication: BREAST CANCER
     Route: 042
     Dates: start: 20140103, end: 20140103
  2. ANTRA [Concomitant]
     Route: 048
  3. HERCEPTIN [Concomitant]
     Route: 042
     Dates: start: 20140103, end: 20140103
  4. CARDICOR [Concomitant]
     Indication: HYPERTENSION
     Route: 048

REACTIONS (1)
  - Dermatitis [Unknown]
